FAERS Safety Report 24995204 (Version 1)
Quarter: 2025Q1

REPORT INFORMATION
  Report Type: Spontaneous
  Country: JP (occurrence: JP)
  Receive Date: 20250221
  Receipt Date: 20250221
  Transmission Date: 20250408
  Serious: Yes (Other)
  Sender: PFIZER
  Company Number: JP-PFIZER INC-PV202500019832

PATIENT
  Age: 11 Month
  Sex: Male

DRUGS (5)
  1. INFLIXIMAB [Suspect]
     Active Substance: INFLIXIMAB
     Indication: Type 1 diabetes mellitus
  2. INFLIXIMAB [Suspect]
     Active Substance: INFLIXIMAB
     Indication: Haploinsufficiency of A20
  3. PREDNISOLONE [Concomitant]
     Active Substance: PREDNISOLONE
  4. AZATHIOPRINE [Concomitant]
     Active Substance: AZATHIOPRINE
  5. INSULIN B [Concomitant]

REACTIONS (2)
  - Infusion related reaction [Unknown]
  - Off label use [Unknown]
